FAERS Safety Report 20362044 (Version 1)
Quarter: 2022Q1

REPORT INFORMATION
  Report Type: Spontaneous
  Country: RU (occurrence: RU)
  Receive Date: 20220121
  Receipt Date: 20220121
  Transmission Date: 20220423
  Serious: Yes (Hospitalization)
  Sender: FDA-Public Use
  Company Number: RU-PFIZER INC-202200031210

PATIENT
  Age: 61 Year
  Sex: Female

DRUGS (2)
  1. PALBOCICLIB [Suspect]
     Active Substance: PALBOCICLIB
     Indication: Breast cancer metastatic
     Dosage: UNK
     Dates: start: 202112, end: 202201
  2. ANASTROZOLE [Suspect]
     Active Substance: ANASTROZOLE
     Indication: Breast cancer metastatic
     Dosage: UNK
     Dates: start: 202112, end: 202201

REACTIONS (3)
  - Acute myocardial infarction [Recovering/Resolving]
  - Heart rate abnormal [Recovering/Resolving]
  - Arteriosclerosis [Recovering/Resolving]

NARRATIVE: CASE EVENT DATE: 20211201
